FAERS Safety Report 7738612-X (Version None)
Quarter: 2011Q3

REPORT INFORMATION
  Report Type: 
  Country: None (occurrence: None)
  Receive Date: 20110908
  Receipt Date: 20110829
  Transmission Date: 20111222
  Serious: Yes (Hospitalization, Other)
  Sender: FDA-Public Use
  Company Number: US-ASTRAZENECA-2011SE51788

PATIENT
  Age: 47 Year
  Sex: Female
  Weight: 76.2 kg

DRUGS (6)
  1. CLONAPINE [Concomitant]
     Indication: ANXIETY
  2. VENTOLIN HFA [Concomitant]
     Indication: ASTHMA
  3. SEROQUEL [Suspect]
     Indication: ANXIETY
     Route: 048
     Dates: start: 20070101
  4. SEROQUEL [Suspect]
     Route: 048
  5. IBUPROFEN [Concomitant]
     Indication: PAIN
  6. ANEBALEX [Concomitant]
     Indication: BLADDER DISORDER

REACTIONS (7)
  - MOOD SWINGS [None]
  - DRUG INEFFECTIVE [None]
  - DISTURBANCE IN SOCIAL BEHAVIOUR [None]
  - INSOMNIA [None]
  - ASTHMA [None]
  - DRUG DOSE OMISSION [None]
  - ANXIETY [None]
